FAERS Safety Report 17250853 (Version 1)
Quarter: 2020Q1

REPORT INFORMATION
  Report Type: Spontaneous
  Country: US (occurrence: US)
  Receive Date: 20200109
  Receipt Date: 20200109
  Transmission Date: 20200409
  Serious: Yes (Hospitalization)
  Sender: FDA-Public Use
  Company Number: US-HORIZON-PRO-0005-2020

PATIENT
  Age: 19 Year
  Sex: Female

DRUGS (1)
  1. PROCYSBI [Suspect]
     Active Substance: CYSTEAMINE BITARTRATE
     Indication: CYSTINOSIS
     Dosage: 150MG (2 X 75MG CAPSULES) TWICE DAILY FOR TOTAL DAILY DOSE OF 300MG

REACTIONS (1)
  - Gastrointestinal viral infection [Not Recovered/Not Resolved]
